FAERS Safety Report 10413204 (Version 1)
Quarter: 2014Q3

REPORT INFORMATION
  Report Type: Spontaneous
  Country: US (occurrence: None)
  Receive Date: 20140825
  Receipt Date: 20140825
  Transmission Date: 20150326
  Serious: Yes (Hospitalization, Other)
  Sender: FDA-Public Use
  Company Number: AUR-APL-2014-08993

PATIENT
  Age: 55 Year
  Sex: Male

DRUGS (2)
  1. PIPERACILLIN/TAZOBACTAM [Suspect]
     Active Substance: PIPERACILLIN SODIUM\TAZOBACTAM SODIUM
     Indication: PNEUMONIA
  2. VANCOMYCIN [Suspect]
     Active Substance: VANCOMYCIN
     Indication: PNEUMONIA

REACTIONS (8)
  - Linear IgA disease [None]
  - General physical health deterioration [None]
  - Hypotension [None]
  - Pancytopenia [None]
  - Renal failure acute [None]
  - Cerebrovascular accident [None]
  - Pyrexia [None]
  - Rash maculo-papular [None]
